FAERS Safety Report 8169385-7 (Version None)
Quarter: 2012Q1

REPORT INFORMATION
  Report Type: 
  Country: None (occurrence: None)
  Receive Date: 20120222
  Receipt Date: 20120207
  Transmission Date: 20120608
  Serious: Yes (Hospitalization)
  Sender: FDA-Public Use
  Company Number: B0782108A

PATIENT
  Age: 48 Year
  Sex: Male

DRUGS (3)
  1. LAMIVUDINE [Suspect]
     Indication: HIV INFECTION
  2. LOPINAVIR AND RITONAVIR [Suspect]
     Indication: HIV INFECTION
  3. TENOFOVIR DISOPROXIL FUMARATE [Suspect]
     Indication: HIV INFECTION

REACTIONS (7)
  - DISSEMINATED CRYPTOCOCCOSIS [None]
  - RASH MACULO-PAPULAR [None]
  - CYTOMEGALOVIRUS CHORIORETINITIS [None]
  - LYMPHADENOPATHY [None]
  - IMMUNE RECONSTITUTION SYNDROME [None]
  - COCCIDIOIDOMYCOSIS [None]
  - ARTHRALGIA [None]
